FAERS Safety Report 8914997 (Version 1)
Quarter: 2012Q4

REPORT INFORMATION
  Report Type: 
  Country: US (occurrence: US)
  Receive Date: 20121116
  Receipt Date: 20121116
  Transmission Date: 20130627
  Serious: Yes (Hospitalization)
  Sender: FDA-Public Use
  Company Number: US-GLAXOSMITHKLINE-A0777230A

PATIENT
  Age: 73 Year
  Sex: Female
  Weight: 101.8 kg

DRUGS (10)
  1. AVANDIA [Suspect]
     Indication: DIABETES MELLITUS
     Dosage: 4MG Twice per day
     Route: 048
     Dates: start: 200003, end: 200806
  2. AVANDAMET [Suspect]
     Indication: DIABETES MELLITUS
     Route: 048
     Dates: start: 200102, end: 200306
  3. GLUCOPHAGE [Concomitant]
  4. SYNTHROID [Concomitant]
  5. IMDUR [Concomitant]
  6. GLYBURIDE [Concomitant]
  7. CRESTOR [Concomitant]
  8. LOTREL [Concomitant]
  9. LANTUS [Concomitant]
  10. LASIX [Concomitant]

REACTIONS (1)
  - Myocardial infarction [Recovering/Resolving]
